FAERS Safety Report 17304918 (Version 3)
Quarter: 2020Q4

REPORT INFORMATION
  Report Type: Spontaneous
  Country: US (occurrence: US)
  Receive Date: 20200123
  Receipt Date: 20201020
  Transmission Date: 20210113
  Serious: No
  Sender: FDA-Public Use
  Company Number: US-PFIZER INC-2020008919

PATIENT
  Age: 36 Year
  Sex: Female
  Weight: 104.3 kg

DRUGS (3)
  1. NICOTROL [Suspect]
     Active Substance: NICOTINE
     Indication: SMOKING CESSATION THERAPY
     Dosage: 10 MG/ML, 3X/DAY
  2. NICOTROL [Suspect]
     Active Substance: NICOTINE
     Dosage: UNK, 4X/DAY (2 PUFFS)
     Route: 048
  3. NICOTROL [Suspect]
     Active Substance: NICOTINE
     Dosage: 4 CATRIDGES, DAILY

REACTIONS (2)
  - Agitation [Unknown]
  - Memory impairment [Recovered/Resolved]

NARRATIVE: CASE EVENT DATE: 2019
